FAERS Safety Report 9726119 (Version 2)
Quarter: 2014Q1

REPORT INFORMATION
  Report Type: Spontaneous
  Country: US (occurrence: US)
  Receive Date: 20131203
  Receipt Date: 20140107
  Transmission Date: 20141002
  Serious: Yes (Other)
  Sender: FDA-Public Use
  Company Number: US-ABBVIE-13P-163-1174214-00

PATIENT
  Sex: Female

DRUGS (3)
  1. SYNTHROID [Suspect]
     Indication: PRODUCT USED FOR UNKNOWN INDICATION
     Route: 048
  2. BACTRIM [Suspect]
     Indication: URINARY TRACT INFECTION
     Dates: start: 201308, end: 201308
  3. SILVER SULFADIAZINE [Suspect]
     Indication: SKIN INFECTION
     Route: 061
     Dates: start: 201310, end: 201310

REACTIONS (6)
  - Squamous cell carcinoma [Recovered/Resolved]
  - Bladder cancer [Recovered/Resolved]
  - Thyroid function test abnormal [Recovered/Resolved]
  - Urinary tract infection [Unknown]
  - Fall [Recovered/Resolved]
  - Skin infection [Recovered/Resolved]
